FAERS Safety Report 4489217-8 (Version None)
Quarter: 2004Q4

REPORT INFORMATION
  Report Type: 
  Country: None (occurrence: None)
  Receive Date: 20041029
  Receipt Date: 20041005
  Transmission Date: 20050328
  Serious: Yes (Life-Threatening, Hospitalization)
  Sender: FDA-Public Use
  Company Number: JP-MERCK-0410USA01550

PATIENT
  Age: 19 Year
  Sex: Male

DRUGS (7)
  1. PEPCID [Suspect]
     Indication: PROPHYLAXIS AGAINST GASTROINTESTINAL ULCER
     Route: 048
     Dates: start: 20040901, end: 20040927
  2. IMURAN [Suspect]
     Indication: GLOMERULONEPHRITIS PROLIFERATIVE
     Route: 048
     Dates: start: 20040901, end: 20040927
  3. IMURAN [Suspect]
     Indication: HAEMATURIA
     Route: 048
     Dates: start: 20040901, end: 20040927
  4. WARFARIN POTASSIUM [Concomitant]
     Route: 048
     Dates: start: 20040901
  5. PREDONINE [Concomitant]
     Route: 048
     Dates: start: 20040901, end: 20040928
  6. PREDONINE [Concomitant]
     Route: 048
     Dates: start: 20040929
  7. PERSANTIN INJ [Concomitant]
     Route: 048
     Dates: start: 20040901

REACTIONS (5)
  - AGRANULOCYTOSIS [None]
  - ALOPECIA [None]
  - INFECTION [None]
  - PANCYTOPENIA [None]
  - STOMATITIS [None]
